FAERS Safety Report 5577683-6 (Version None)
Quarter: 2007Q4

REPORT INFORMATION
  Report Type: 
  Country: None (occurrence: None)
  Receive Date: 20071227
  Receipt Date: 20071211
  Transmission Date: 20080405
  Serious: Yes (Other)
  Sender: FDA-Public Use
  Company Number: 2007US002550

PATIENT
  Age: 67 Year
  Sex: Female

DRUGS (4)
  1. PROGRAF [Suspect]
     Indication: PANCREAS TRANSPLANT
     Dosage: 1 MG, BID, ORAL; 1 MG, BID, ORAL; 1 MG, BID, ORAL
     Route: 048
     Dates: start: 19990201, end: 20061201
  2. PROGRAF [Suspect]
     Indication: PANCREAS TRANSPLANT
     Dosage: 1 MG, BID, ORAL; 1 MG, BID, ORAL; 1 MG, BID, ORAL
     Route: 048
     Dates: start: 20070101, end: 20070201
  3. PROGRAF [Suspect]
     Indication: PANCREAS TRANSPLANT
     Dosage: 1 MG, BID, ORAL; 1 MG, BID, ORAL; 1 MG, BID, ORAL
     Route: 048
     Dates: start: 20070401, end: 20070901
  4. CELLCEPT [Concomitant]

REACTIONS (2)
  - PANCREAS TRANSPLANT REJECTION [None]
  - TREATMENT NONCOMPLIANCE [None]
